FAERS Safety Report 16138022 (Version 1)
Quarter: 2019Q1

REPORT INFORMATION
  Report Type: Spontaneous
  Country: US (occurrence: US)
  Receive Date: 20190330
  Receipt Date: 20190330
  Transmission Date: 20190418
  Serious: No
  Sender: FDA-Public Use
  Company Number: US-TEVA-2019-US-1022395

PATIENT
  Sex: Female

DRUGS (1)
  1. GLIPIZIDE PAR [Suspect]
     Active Substance: GLIPIZIDE
     Route: 065

REACTIONS (2)
  - Product substitution issue [Unknown]
  - Headache [Unknown]
